FAERS Safety Report 19310609 (Version 2)
Quarter: 2021Q2

REPORT INFORMATION
  Report Type: Report from Study
  Country: AU (occurrence: AU)
  Receive Date: 20210526
  Receipt Date: 20210609
  Transmission Date: 20210717
  Serious: Yes (Hospitalization)
  Sender: FDA-Public Use
  Company Number: AU-ROCHE-2621007

PATIENT
  Age: 49 Year
  Sex: Female
  Weight: 94.3 kg

DRUGS (138)
  1. TOCILIZUMAB. [Suspect]
     Active Substance: TOCILIZUMAB
     Indication: CYTOKINE RELEASE SYNDROME
     Dosage: DATE OF MOST RECENT DOSE (8 MG/KG) OF TOCILIZUMAB PRIOR TO SAE ONSET 21/MAY/2020 AT 03:55 PM ENDED O
     Route: 042
     Dates: start: 20200520
  2. ALLOPURINOL. [Concomitant]
     Active Substance: ALLOPURINOL
     Indication: TUMOUR LYSIS SYNDROME
     Route: 048
  3. DIPHENHYDRAMINE. [Concomitant]
     Active Substance: DIPHENHYDRAMINE
     Dosage: OTHER
     Route: 048
     Dates: start: 20200520, end: 20200520
  4. PACKED RED BLOOD CELLS [Concomitant]
     Active Substance: HUMAN RED BLOOD CELL
     Route: 042
     Dates: start: 20200706, end: 20200706
  5. OXYCODONE [Concomitant]
     Active Substance: OXYCODONE
     Dosage: OTHER
     Route: 048
     Dates: start: 20200606, end: 20200606
  6. OXYCODONE [Concomitant]
     Active Substance: OXYCODONE
     Route: 048
     Dates: start: 20200606, end: 20200606
  7. TRIMETHOPRIM. [Concomitant]
     Active Substance: TRIMETHOPRIM
     Dosage: 1 TABLET
     Route: 048
     Dates: start: 20200522, end: 20200526
  8. FRUSEMIDE [Concomitant]
     Active Substance: FUROSEMIDE
     Dosage: OTHER
     Route: 042
     Dates: start: 20200605, end: 20200605
  9. POTASSIUM CHLORIDE. [Concomitant]
     Active Substance: POTASSIUM CHLORIDE
     Dosage: 10 OTHER
     Route: 042
     Dates: start: 20200604, end: 20200604
  10. NORMAL SALINE [Concomitant]
     Active Substance: SODIUM CHLORIDE
     Dosage: OTHER
     Route: 042
     Dates: start: 20200610, end: 20200610
  11. POTASSIUM [Concomitant]
     Active Substance: POTASSIUM
     Route: 048
     Dates: start: 20200629, end: 20200629
  12. PLATELETS [Concomitant]
     Active Substance: HUMAN PLATELET, ALLOGENIC
     Route: 042
     Dates: start: 20200620, end: 20200620
  13. MACROGOL [Concomitant]
     Active Substance: POLYETHYLENE GLYCOLS
     Indication: CONSTIPATION
     Dosage: 1 OTHER
     Route: 048
     Dates: start: 20200604, end: 20200604
  14. MAGNESIUM [Concomitant]
     Active Substance: MAGNESIUM
     Route: 048
     Dates: start: 20200630, end: 20200630
  15. CYCLOPHOSPHAMIDE. [Concomitant]
     Active Substance: CYCLOPHOSPHAMIDE
     Indication: NEOPLASM MALIGNANT
  16. TOCILIZUMAB. [Suspect]
     Active Substance: TOCILIZUMAB
     Dosage: OTHER
     Route: 042
     Dates: start: 20200520, end: 20200520
  17. PETER MACCALLUM MOUTHWASH [SODIUM BICARBONATE;SODIUM CHLORIDE] [Concomitant]
     Route: 061
  18. TARGIN [Concomitant]
     Active Substance: NALOXONE HYDROCHLORIDE\OXYCODONE HYDROCHLORIDE
     Indication: PAIN
     Route: 048
  19. LIGNOCAINE [Concomitant]
     Active Substance: LIDOCAINE HYDROCHLORIDE
     Indication: LOCAL ANAESTHESIA
     Route: 061
     Dates: start: 20200513, end: 20200513
  20. PARACETAMOL [Concomitant]
     Active Substance: ACETAMINOPHEN
     Dosage: OTHER
     Route: 048
     Dates: start: 20200605, end: 20200605
  21. DEXAMETHASONE. [Concomitant]
     Active Substance: DEXAMETHASONE
     Dosage: OTHER
     Route: 042
     Dates: start: 20200520, end: 20200520
  22. DEXAMETHASONE. [Concomitant]
     Active Substance: DEXAMETHASONE
     Dosage: OTHER
     Route: 042
     Dates: start: 20200521, end: 20200521
  23. DEXAMETHASONE. [Concomitant]
     Active Substance: DEXAMETHASONE
     Dosage: UNKNOWN
     Route: 048
     Dates: start: 20200610, end: 20200610
  24. OXYCODONE [Concomitant]
     Active Substance: OXYCODONE
     Dosage: OTHER
     Dates: start: 20200607, end: 20200607
  25. FRUSEMIDE [Concomitant]
     Active Substance: FUROSEMIDE
     Route: 042
     Dates: start: 20200618, end: 20200618
  26. NORMAL SALINE [Concomitant]
     Active Substance: SODIUM CHLORIDE
     Dosage: OTHER
     Route: 042
     Dates: start: 20200520, end: 20200520
  27. NORMAL SALINE [Concomitant]
     Active Substance: SODIUM CHLORIDE
     Dosage: OTHER
     Route: 042
     Dates: start: 20200605, end: 20200605
  28. POTASSIUM [Concomitant]
     Active Substance: POTASSIUM
     Route: 048
     Dates: start: 20200607, end: 20200607
  29. PLATELETS [Concomitant]
     Active Substance: HUMAN PLATELET, ALLOGENIC
     Route: 042
     Dates: start: 20200629, end: 20200629
  30. CEVOSTAMAB. [Suspect]
     Active Substance: CEVOSTAMAB
     Indication: PLASMA CELL MYELOMA
     Dosage: DATE OF MOST RECENT DOSE OF BFCR4350A PRIOR TO AE ONSET 04/JUN/2020 AT 09:55 (3.6 MG) ON 21?DAY CYCL
     Route: 042
     Dates: start: 20200520
  31. FILGRASTIM [Concomitant]
     Active Substance: FILGRASTIM
     Route: 058
     Dates: start: 20200625, end: 20200625
  32. DIAZEPAM. [Concomitant]
     Active Substance: DIAZEPAM
     Indication: PAIN
     Route: 048
     Dates: start: 20200618, end: 20200618
  33. ONDANSETRON [Concomitant]
     Active Substance: ONDANSETRON
     Indication: NAUSEA
     Route: 048
     Dates: start: 20200521, end: 20200521
  34. PROPOFOL. [Concomitant]
     Active Substance: PROPOFOL
     Route: 042
     Dates: start: 20200615, end: 20200615
  35. RASBURICASE [Concomitant]
     Active Substance: RASBURICASE
     Indication: TUMOUR LYSIS SYNDROME
     Dosage: UNKNOWN
     Route: 042
     Dates: start: 20200520, end: 20200520
  36. OXYCODONE [Concomitant]
     Active Substance: OXYCODONE
     Dosage: UNKNOWN
     Dates: start: 20200607, end: 20200607
  37. MORPHINE [Concomitant]
     Active Substance: MORPHINE
     Indication: PAIN
     Dosage: OTHER
     Route: 042
     Dates: start: 20200521, end: 20200521
  38. POTASSIUM CHLORIDE. [Concomitant]
     Active Substance: POTASSIUM CHLORIDE
     Dosage: 28 OTHER
     Route: 042
     Dates: start: 20200603, end: 20200603
  39. POTASSIUM CHLORIDE. [Concomitant]
     Active Substance: POTASSIUM CHLORIDE
     Route: 048
     Dates: start: 20200606, end: 20200606
  40. NORMAL SALINE [Concomitant]
     Active Substance: SODIUM CHLORIDE
     Dosage: OTHER
     Route: 042
     Dates: start: 20200521, end: 20200521
  41. NORMAL SALINE [Concomitant]
     Active Substance: SODIUM CHLORIDE
     Dosage: OTHER
     Route: 042
     Dates: start: 20200522, end: 20200522
  42. NORMAL SALINE [Concomitant]
     Active Substance: SODIUM CHLORIDE
     Dosage: OTHER
     Route: 042
     Dates: start: 20200523, end: 20200523
  43. MAGNESIUM SULPHATE [Concomitant]
     Active Substance: MAGNESIUM SULFATE
     Dosage: 10 OTHER
     Route: 042
     Dates: start: 20200520, end: 20200520
  44. MAGNESIUM SULPHATE [Concomitant]
     Active Substance: MAGNESIUM SULFATE
     Dosage: 10 OTHER
     Route: 042
     Dates: start: 20200604, end: 20200604
  45. PANADOL [Concomitant]
     Active Substance: ACETAMINOPHEN
     Route: 048
     Dates: start: 20200606, end: 20200606
  46. METHADONE [Concomitant]
     Active Substance: METHADONE HYDROCHLORIDE
     Route: 048
     Dates: start: 20200620, end: 20200620
  47. ZOMETA [Concomitant]
     Active Substance: ZOLEDRONIC ACID
     Route: 042
     Dates: start: 20200527, end: 20200527
  48. DARATUMUMAB [Concomitant]
     Active Substance: DARATUMUMAB
     Indication: NEOPLASM MALIGNANT
     Dates: start: 20200710, end: 20200901
  49. FILGRASTIM [Concomitant]
     Active Substance: FILGRASTIM
     Route: 058
     Dates: start: 20200624
  50. PANTOPRAZOLE [Concomitant]
     Active Substance: PANTOPRAZOLE
     Route: 048
  51. PACKED RED BLOOD CELLS [Concomitant]
     Active Substance: HUMAN RED BLOOD CELL
     Route: 042
     Dates: start: 20200617, end: 20200617
  52. OXYCODONE [Concomitant]
     Active Substance: OXYCODONE
     Dosage: OTHER
     Route: 048
     Dates: start: 20200603, end: 20200603
  53. OXYCODONE [Concomitant]
     Active Substance: OXYCODONE
     Dosage: OTHER
     Route: 048
     Dates: start: 20200606, end: 20200606
  54. OXYCODONE [Concomitant]
     Active Substance: OXYCODONE
     Route: 048
     Dates: start: 20200618, end: 20200618
  55. CEFEPIME [Concomitant]
     Active Substance: CEFEPIME HYDROCHLORIDE
     Dosage: OTHER
     Route: 042
     Dates: start: 20200521, end: 20200521
  56. POTASSIUM CHLORIDE. [Concomitant]
     Active Substance: POTASSIUM CHLORIDE
     Route: 042
     Dates: start: 20200527, end: 20200527
  57. NORMAL SALINE [Concomitant]
     Active Substance: SODIUM CHLORIDE
     Dosage: OTHER
     Route: 042
     Dates: start: 20200611, end: 20200611
  58. PLATELETS [Concomitant]
     Active Substance: HUMAN PLATELET, ALLOGENIC
     Route: 042
     Dates: start: 20200706, end: 20200706
  59. METOCLOPRAMIDE. [Concomitant]
     Active Substance: METOCLOPRAMIDE
     Indication: NAUSEA
     Route: 048
  60. ONDANSETRON [Concomitant]
     Active Substance: ONDANSETRON
     Route: 048
  61. VALACYCLOVIR [Concomitant]
     Active Substance: VALACYCLOVIR HYDROCHLORIDE
     Route: 048
  62. ZOLEDRONIC ACID [Concomitant]
     Active Substance: ZOLEDRONIC ACID
     Dosage: OTHER
     Route: 042
     Dates: start: 20200527, end: 20200527
  63. RASBURICASE [Concomitant]
     Active Substance: RASBURICASE
     Dosage: OTHER
     Route: 042
     Dates: start: 20200604, end: 20200604
  64. PARACETAMOL [Concomitant]
     Active Substance: ACETAMINOPHEN
     Dates: start: 20200606, end: 20200606
  65. PARACETAMOL [Concomitant]
     Active Substance: ACETAMINOPHEN
     Route: 048
     Dates: start: 20200610, end: 20200610
  66. DIPHENHYDRAMINE. [Concomitant]
     Active Substance: DIPHENHYDRAMINE
     Dosage: OTHER
     Route: 048
     Dates: start: 20200604, end: 20200604
  67. DEXAMETHASONE. [Concomitant]
     Active Substance: DEXAMETHASONE
     Dosage: OTHER
     Route: 042
     Dates: start: 20200604, end: 20200604
  68. DEXAMETHASONE. [Concomitant]
     Active Substance: DEXAMETHASONE
     Dosage: UNKNOWN
     Route: 042
     Dates: start: 20200606, end: 20200606
  69. PACKED RED BLOOD CELLS [Concomitant]
     Active Substance: HUMAN RED BLOOD CELL
     Indication: ANAEMIA
     Dosage: 1 U
     Route: 042
     Dates: start: 20200513, end: 20200513
  70. PACKED RED BLOOD CELLS [Concomitant]
     Active Substance: HUMAN RED BLOOD CELL
     Dosage: 1 U
     Route: 042
     Dates: start: 20200523, end: 20200523
  71. PACKED RED BLOOD CELLS [Concomitant]
     Active Substance: HUMAN RED BLOOD CELL
     Dosage: 1 U
     Route: 042
     Dates: start: 20200606, end: 20200606
  72. OXYCODONE [Concomitant]
     Active Substance: OXYCODONE
     Route: 048
     Dates: start: 20200619, end: 20200619
  73. TAZOCIN [Concomitant]
     Active Substance: PIPERACILLIN SODIUM\TAZOBACTAM SODIUM
     Indication: INFECTION
     Dosage: OTHER
     Route: 042
     Dates: start: 20200520, end: 20200520
  74. MORPHINE [Concomitant]
     Active Substance: MORPHINE
     Route: 058
     Dates: start: 20200618, end: 20200618
  75. CLONIDINE. [Concomitant]
     Active Substance: CLONIDINE
     Indication: PAIN
     Route: 048
     Dates: start: 20200521, end: 20200521
  76. FRUSEMIDE [Concomitant]
     Active Substance: FUROSEMIDE
     Indication: FLUID OVERLOAD
     Route: 042
     Dates: start: 20200522, end: 20200522
  77. NORMAL SALINE [Concomitant]
     Active Substance: SODIUM CHLORIDE
     Dosage: OTHER
     Route: 045
     Dates: start: 20200520, end: 20200520
  78. MAGNESIUM SULPHATE [Concomitant]
     Active Substance: MAGNESIUM SULFATE
     Dosage: 10 OTHER
     Route: 042
     Dates: start: 20200603, end: 20200603
  79. PANADOL [Concomitant]
     Active Substance: ACETAMINOPHEN
     Dosage: OTHER
     Dates: start: 20200606, end: 20200606
  80. ZOMETA [Concomitant]
     Active Substance: ZOLEDRONIC ACID
     Route: 042
     Dates: start: 20200625, end: 20200625
  81. OXYGEN. [Concomitant]
     Active Substance: OXYGEN
     Dosage: 2 LITRES/MIN?@ OTHER
     Route: 045
     Dates: start: 20200520, end: 20200520
  82. TOCILIZUMAB. [Suspect]
     Active Substance: TOCILIZUMAB
     Dosage: OTHER
     Route: 042
     Dates: start: 20200521, end: 20200521
  83. FILGRASTIM [Concomitant]
     Active Substance: FILGRASTIM
     Route: 058
     Dates: start: 20200701, end: 20200701
  84. PARACETAMOL [Concomitant]
     Active Substance: ACETAMINOPHEN
     Indication: PYREXIA
     Dosage: OTHER
     Route: 048
     Dates: start: 20200520, end: 20200520
  85. DEXAMETHASONE. [Concomitant]
     Active Substance: DEXAMETHASONE
     Dosage: OTHER
     Route: 042
     Dates: start: 20200605, end: 20200605
  86. DEXAMETHASONE. [Concomitant]
     Active Substance: DEXAMETHASONE
     Route: 048
     Dates: start: 20200618, end: 20200618
  87. PACKED RED BLOOD CELLS [Concomitant]
     Active Substance: HUMAN RED BLOOD CELL
     Dosage: 1 U
     Route: 042
     Dates: start: 20200519, end: 20200519
  88. PACKED RED BLOOD CELLS [Concomitant]
     Active Substance: HUMAN RED BLOOD CELL
     Dosage: 1 U
     Route: 042
     Dates: start: 20200605, end: 20200605
  89. PACKED RED BLOOD CELLS [Concomitant]
     Active Substance: HUMAN RED BLOOD CELL
     Route: 042
     Dates: start: 20200620, end: 20200620
  90. PETHIDINE [Concomitant]
     Active Substance: MEPERIDINE
     Indication: PAIN
     Route: 042
     Dates: start: 20200520, end: 20200520
  91. HYDROCORTISONE. [Concomitant]
     Active Substance: HYDROCORTISONE
     Indication: CYTOKINE RELEASE SYNDROME
     Route: 042
     Dates: start: 20200520, end: 20200520
  92. OXYCODONE [Concomitant]
     Active Substance: OXYCODONE
     Dosage: OTHER
     Route: 048
     Dates: start: 20200605, end: 20200605
  93. OXYCODONE [Concomitant]
     Active Substance: OXYCODONE
     Route: 048
     Dates: start: 20200607, end: 20200607
  94. OXYCODONE [Concomitant]
     Active Substance: OXYCODONE
     Dosage: 10 TABLETS
     Route: 048
     Dates: start: 20200620, end: 20200620
  95. FRUSEMIDE [Concomitant]
     Active Substance: FUROSEMIDE
     Dosage: OTHER
     Route: 042
     Dates: start: 20200602, end: 20200602
  96. NORMAL SALINE [Concomitant]
     Active Substance: SODIUM CHLORIDE
     Dosage: OTHER
     Route: 042
     Dates: start: 20200527, end: 20200527
  97. NORMAL SALINE [Concomitant]
     Active Substance: SODIUM CHLORIDE
     Dosage: OTHER
     Route: 042
     Dates: start: 20200604, end: 20200604
  98. NORMAL SALINE [Concomitant]
     Active Substance: SODIUM CHLORIDE
     Dosage: OTHER
     Route: 042
     Dates: start: 20200606, end: 20200606
  99. MAGNESIUM SULPHATE [Concomitant]
     Active Substance: MAGNESIUM SULFATE
     Dosage: 10 OTHER
     Route: 042
     Dates: start: 20200527, end: 20200527
  100. ENOXAPARIN [Concomitant]
     Active Substance: ENOXAPARIN
     Indication: DEEP VEIN THROMBOSIS
     Dosage: OTHER
     Route: 058
     Dates: start: 20200603, end: 20200603
  101. ZOMETA [Concomitant]
     Active Substance: ZOLEDRONIC ACID
     Route: 042
     Dates: start: 20200703, end: 20200703
  102. MIDAZOLAM. [Concomitant]
     Active Substance: MIDAZOLAM
     Indication: SEDATION
     Route: 042
     Dates: start: 20200513, end: 20200513
  103. ZOLEDRONIC ACID [Concomitant]
     Active Substance: ZOLEDRONIC ACID
     Route: 042
     Dates: start: 20200515, end: 20200515
  104. PARACETAMOL [Concomitant]
     Active Substance: ACETAMINOPHEN
     Dosage: OTHER
     Route: 048
     Dates: start: 20200520, end: 20200520
  105. PACKED RED BLOOD CELLS [Concomitant]
     Active Substance: HUMAN RED BLOOD CELL
     Dosage: 1 U
     Route: 042
     Dates: start: 20200521, end: 20200521
  106. PACKED RED BLOOD CELLS [Concomitant]
     Active Substance: HUMAN RED BLOOD CELL
     Route: 042
     Dates: start: 20200629, end: 20200629
  107. PROMETHAZINE [Concomitant]
     Active Substance: PROMETHAZINE HYDROCHLORIDE
     Indication: INFUSION RELATED REACTION
     Route: 030
     Dates: start: 20200520, end: 20200520
  108. PROMETHAZINE [Concomitant]
     Active Substance: PROMETHAZINE HYDROCHLORIDE
     Indication: NAUSEA
     Route: 048
     Dates: start: 20200618, end: 20200618
  109. OXYCODONE [Concomitant]
     Active Substance: OXYCODONE
     Indication: BONE PAIN
     Dosage: OTHER
     Route: 048
     Dates: start: 20200521, end: 20200521
  110. OXYCODONE [Concomitant]
     Active Substance: OXYCODONE
     Dosage: OTHER
     Route: 048
     Dates: start: 20200605, end: 20200605
  111. PLATELETS [Concomitant]
     Active Substance: HUMAN PLATELET, ALLOGENIC
     Indication: PLATELET COUNT DECREASED
     Route: 042
     Dates: start: 20200616, end: 20200616
  112. PLATELETS [Concomitant]
     Active Substance: HUMAN PLATELET, ALLOGENIC
     Route: 042
     Dates: start: 20200624, end: 20200624
  113. PLATELETS [Concomitant]
     Active Substance: HUMAN PLATELET, ALLOGENIC
     Route: 042
     Dates: start: 20200701, end: 20200701
  114. THALIDOMIDE [Concomitant]
     Active Substance: THALIDOMIDE
     Indication: NEOPLASM MALIGNANT
  115. FILGRASTIM [Concomitant]
     Active Substance: FILGRASTIM
     Indication: NEUTROPHIL COUNT DECREASED
     Route: 058
     Dates: start: 20200603, end: 20200603
  116. METOCLOPRAMIDE. [Concomitant]
     Active Substance: METOCLOPRAMIDE
     Route: 042
     Dates: start: 20200520, end: 20200520
  117. ONDANSETRON [Concomitant]
     Active Substance: ONDANSETRON
     Dosage: OTHER
     Route: 065
     Dates: start: 20200607, end: 20200607
  118. ONDANSETRON [Concomitant]
     Active Substance: ONDANSETRON
     Route: 058
     Dates: start: 20200618, end: 20200618
  119. DULOXETINE. [Concomitant]
     Active Substance: DULOXETINE
     Indication: PAIN
     Route: 048
  120. PROPOFOL. [Concomitant]
     Active Substance: PROPOFOL
     Indication: SEDATION
     Route: 042
     Dates: start: 20200513, end: 20200513
  121. RASBURICASE [Concomitant]
     Active Substance: RASBURICASE
     Dosage: OTHER
     Route: 045
     Dates: start: 20200527, end: 20200527
  122. DEXAMETHASONE. [Concomitant]
     Active Substance: DEXAMETHASONE
     Dosage: UNKNOWN
     Dates: start: 20200610, end: 20200610
  123. DEXAMETHASONE. [Concomitant]
     Active Substance: DEXAMETHASONE
     Route: 048
     Dates: start: 20200620, end: 20200620
  124. PACKED RED BLOOD CELLS [Concomitant]
     Active Substance: HUMAN RED BLOOD CELL
     Route: 042
     Dates: start: 20200630, end: 20200630
  125. OXYCODONE [Concomitant]
     Active Substance: OXYCODONE
     Indication: PAIN
     Dosage: OTHER
     Route: 048
     Dates: start: 20200520, end: 20200520
  126. OXYCODONE [Concomitant]
     Active Substance: OXYCODONE
     Dosage: OTHER
     Route: 048
     Dates: start: 20200521, end: 20200521
  127. OXYCODONE [Concomitant]
     Active Substance: OXYCODONE
     Route: 048
     Dates: start: 20200619, end: 20200619
  128. TAZOCIN [Concomitant]
     Active Substance: PIPERACILLIN SODIUM\TAZOBACTAM SODIUM
     Indication: NEUTROPHIL COUNT DECREASED
     Route: 042
     Dates: start: 20200617, end: 20200619
  129. TAZOCIN [Concomitant]
     Active Substance: PIPERACILLIN SODIUM\TAZOBACTAM SODIUM
     Route: 042
     Dates: start: 20200629, end: 20200701
  130. POTASSIUM PHOSPHATE [Concomitant]
     Active Substance: POTASSIUM PHOSPHATE
     Dosage: 10 OTHER
     Route: 042
     Dates: start: 20200520, end: 20200520
  131. ENOXAPARIN [Concomitant]
     Active Substance: ENOXAPARIN
     Route: 060
     Dates: start: 20200521, end: 20200522
  132. FRUSEMIDE [Concomitant]
     Active Substance: FUROSEMIDE
     Route: 042
     Dates: start: 20200606, end: 20200606
  133. POTASSIUM CHLORIDE. [Concomitant]
     Active Substance: POTASSIUM CHLORIDE
     Indication: ELECTROLYTE SUBSTITUTION THERAPY
     Dosage: 10 OTHER
     Route: 042
     Dates: start: 20200527, end: 20200527
  134. POTASSIUM CHLORIDE. [Concomitant]
     Active Substance: POTASSIUM CHLORIDE
     Dosage: 10 OTHER
     Route: 042
     Dates: start: 20200523, end: 20200523
  135. POTASSIUM CHLORIDE. [Concomitant]
     Active Substance: POTASSIUM CHLORIDE
     Dosage: 10 OTHER
     Dates: start: 20200523, end: 20200523
  136. CHLORVESCENT [POTASSIUM CHLORIDE] [Concomitant]
     Dosage: 2 TABLET
     Route: 048
     Dates: start: 20200603, end: 20200603
  137. METHADONE [Concomitant]
     Active Substance: METHADONE HYDROCHLORIDE
     Indication: PAIN
     Route: 048
     Dates: start: 20200619
  138. ZOMETA [Concomitant]
     Active Substance: ZOLEDRONIC ACID
     Route: 042
     Dates: start: 20200515, end: 20200515

REACTIONS (1)
  - Cancer pain [Recovered/Resolved]

NARRATIVE: CASE EVENT DATE: 20200606
